FAERS Safety Report 23980320 (Version 2)
Quarter: 2024Q2

REPORT INFORMATION
  Report Type: Spontaneous
  Country: US (occurrence: US)
  Receive Date: 20240617
  Receipt Date: 20240618
  Transmission Date: 20240716
  Serious: No
  Sender: FDA-Public Use
  Company Number: US-002147023-NVSC2024US125668

PATIENT
  Sex: Female
  Weight: 149 kg

DRUGS (1)
  1. LEQVIO [Suspect]
     Active Substance: INCLISIRAN SODIUM
     Indication: Hyperlipidaemia
     Dosage: 284 MG (284 MG /1.5ML), (DAY 0, DAY 90, EVERY 6 MONTHS)
     Route: 058
     Dates: start: 20240606, end: 20240613

REACTIONS (1)
  - Pain in extremity [Not Recovered/Not Resolved]
